FAERS Safety Report 26043714 (Version 1)
Quarter: 2025Q4

REPORT INFORMATION
  Report Type: Report from Study
  Country: US (occurrence: US)
  Receive Date: 20251113
  Receipt Date: 20251113
  Transmission Date: 20260117
  Serious: Yes (Other)
  Sender: JOHNSON AND JOHNSON
  Company Number: US-JNJFOC-20251148316

PATIENT
  Age: 40 Year
  Sex: Female

DRUGS (1)
  1. SPRAVATO [Suspect]
     Active Substance: ESKETAMINE
     Indication: Depression
     Dosage: ^56 MG, 2 TOTAL DOSES^
     Route: 045
     Dates: start: 20251105, end: 20251107

REACTIONS (4)
  - Hallucination, visual [Unknown]
  - Somnolence [Unknown]
  - Feeling abnormal [Unknown]
  - Visual impairment [Unknown]

NARRATIVE: CASE EVENT DATE: 20251105
